FAERS Safety Report 7028090-0 (Version None)
Quarter: 2010Q4

REPORT INFORMATION
  Report Type: 
  Country: None (occurrence: None)
  Receive Date: 20101005
  Receipt Date: 20100921
  Transmission Date: 20110411
  Serious: Yes (Hospitalization)
  Sender: FDA-Public Use
  Company Number: US-RANBAXY-2010RR-38495

PATIENT
  Sex: Male

DRUGS (4)
  1. CIPROFLOXACIN [Suspect]
     Indication: URETHRITIS
     Dosage: UNK
     Dates: start: 20080201
  2. LEVAQUIN [Suspect]
     Indication: PROPHYLAXIS
     Dosage: 500 MG, UNK
     Route: 048
     Dates: start: 20080601
  3. LEVAQUIN [Suspect]
     Indication: INJURY
  4. TYLENOL [Concomitant]

REACTIONS (4)
  - ARTHROPATHY [None]
  - JOINT INJURY [None]
  - ROTATOR CUFF SYNDROME [None]
  - TENDON RUPTURE [None]
